FAERS Safety Report 16351542 (Version 1)
Quarter: 2019Q2

REPORT INFORMATION
  Report Type: Spontaneous
  Country: GB (occurrence: GB)
  Receive Date: 20190524
  Receipt Date: 20190524
  Transmission Date: 20190711
  Serious: Yes (Hospitalization, Other)
  Sender: FDA-Public Use
  Company Number: GB-TEVA-2019-GB-1053009

PATIENT
  Age: 47 Year
  Sex: Male
  Weight: 74 kg

DRUGS (6)
  1. OMEPRAZOLE. [Concomitant]
     Active Substance: OMEPRAZOLE
     Dates: start: 20181221, end: 20190212
  2. NEFOPAM [Concomitant]
     Active Substance: NEFOPAM
     Dosage: TAKE ONE-TWO 3 TIMES/DAY
     Dates: start: 20180807
  3. COCODAMOL [Concomitant]
     Active Substance: ACETAMINOPHEN\CODEINE PHOSPHATE
     Dosage: ONE OR TWO TO BE TAKEN FOUR TIMES DAILY
     Dates: start: 20180807
  4. CELECOXIB. [Suspect]
     Active Substance: CELECOXIB
     Dates: start: 20181221
  5. BUPRENORPHINE. [Concomitant]
     Active Substance: BUPRENORPHINE
     Dosage: APPLY
     Dates: start: 20190212
  6. TRAZODONE [Concomitant]
     Active Substance: TRAZODONE HYDROCHLORIDE
     Dosage: NIGHT
     Dates: start: 20181221

REACTIONS (1)
  - Primary headache associated with sexual activity [Recovered/Resolved]
